FAERS Safety Report 20150228 (Version 2)
Quarter: 2022Q1

REPORT INFORMATION
  Report Type: Other
  Country: IE (occurrence: IE)
  Receive Date: 20211206
  Receipt Date: 20220201
  Transmission Date: 20220424
  Serious: Yes (Hospitalization)
  Sender: FDA-Public Use
  Company Number: IE-002147023-NVSC2021IE269744

PATIENT
  Age: 12 Year
  Sex: Male

DRUGS (2)
  1. OMALIZUMAB [Suspect]
     Active Substance: OMALIZUMAB
     Indication: Asthma
     Route: 058
     Dates: start: 20210608
  2. OMALIZUMAB [Suspect]
     Active Substance: OMALIZUMAB
     Route: 058

REACTIONS (2)
  - Rash [Unknown]
  - Urticaria [Recovered/Resolved]
